FAERS Safety Report 7985870-2 (Version None)
Quarter: 2011Q4

REPORT INFORMATION
  Report Type: 
  Country: None (occurrence: None)
  Receive Date: 20111007
  Receipt Date: 20110622
  Transmission Date: 20120403
  Serious: No
  Sender: FDA-Public Use
  Company Number: 2011HGS-002326

PATIENT
  Age: 45 Year
  Sex: Female
  Weight: 34.4734 kg

DRUGS (6)
  1. OMEPRAZOLE [Concomitant]
  2. PREDNISONE [Concomitant]
  3. ZOFRAN (ONDANSETRON HYDROCHLORIDE) (ONDANSETRON HYDROCHLORIDE) [Concomitant]
  4. ALLERGY (ALLERGY MEDICATION) (NULL) [Concomitant]
  5. BENLYSTA [Suspect]
     Indication: SYSTEMIC LUPUS ERYTHEMATOSUS
     Dosage: 10 MG/KG, 1 IN 14 D, INTRAVENOUS DRIP
     Route: 041
     Dates: start: 20110422, end: 20110520
  6. ANTIEMETIC (ANTIEMETICS AND ANTINAUSEANTS) (NULL) [Concomitant]

REACTIONS (26)
  - CHEST PAIN [None]
  - CHEST DISCOMFORT [None]
  - COUGH [None]
  - BONE PAIN [None]
  - BURNING SENSATION [None]
  - RHINORRHOEA [None]
  - SYNCOPE [None]
  - ABDOMINAL PAIN [None]
  - DIZZINESS [None]
  - VISION BLURRED [None]
  - PAIN [None]
  - ARTHRALGIA [None]
  - DYSURIA [None]
  - SKIN DISCOLOURATION [None]
  - DYSPNOEA [None]
  - FALL [None]
  - HYPOAESTHESIA [None]
  - MUSCULOSKELETAL DISCOMFORT [None]
  - SENSATION OF HEAVINESS [None]
  - EYE DISORDER [None]
  - DYSPHAGIA [None]
  - SENSORY DISTURBANCE [None]
  - VISUAL IMPAIRMENT [None]
  - HEADACHE [None]
  - PAIN IN EXTREMITY [None]
  - MUSCULOSKELETAL DISORDER [None]
